FAERS Safety Report 21094437 (Version 1)
Quarter: 2022Q3

REPORT INFORMATION
  Report Type: Spontaneous
  Country: IN (occurrence: IN)
  Receive Date: 20220718
  Receipt Date: 20220718
  Transmission Date: 20221027
  Serious: Yes (Other)
  Sender: FDA-Public Use
  Company Number: IN-PFIZER INC-PV202200023767

PATIENT
  Age: 77 Year
  Sex: Female

DRUGS (2)
  1. PALBOCICLIB [Suspect]
     Active Substance: PALBOCICLIB
     Route: 048
  2. LETROZOLE [Concomitant]
     Active Substance: LETROZOLE

REACTIONS (2)
  - Fracture [Unknown]
  - Fall [Unknown]
